FAERS Safety Report 22299634 (Version 1)
Quarter: 2023Q2

REPORT INFORMATION
  Report Type: Spontaneous
  Country: US (occurrence: None)
  Receive Date: 20230508
  Receipt Date: 20230508
  Transmission Date: 20230722
  Serious: Yes (Life-Threatening, Hospitalization)
  Sender: FDA-Public Use
  Company Number: None

PATIENT
  Age: 4 Year
  Sex: Female
  Weight: 12.15 kg

DRUGS (2)
  1. OXCARBAZEPINE [Suspect]
     Active Substance: OXCARBAZEPINE
     Indication: Epilepsy
     Dosage: OTHER QUANTITY : 1 TEASPOON(S);?FREQUENCY : TWICE A DAY;?
     Route: 048
     Dates: start: 20220707, end: 20230508
  2. VITAMINS [Concomitant]
     Active Substance: VITAMINS

REACTIONS (3)
  - Nausea [None]
  - Vomiting [None]
  - Hyponatraemia [None]

NARRATIVE: CASE EVENT DATE: 20230503
